FAERS Safety Report 5136783-5 (Version None)
Quarter: 2006Q4

REPORT INFORMATION
  Report Type: 
  Country: None (occurrence: None)
  Receive Date: 20061023
  Receipt Date: 20061009
  Transmission Date: 20070319
  Serious: Yes (Other)
  Sender: FDA-Public Use
  Company Number: 2005BH002325

PATIENT
  Age: 61 Year
  Sex: Male

DRUGS (1)
  1. DIAZEPAM [Suspect]
     Indication: CONVULSION

REACTIONS (10)
  - AGITATION [None]
  - ALCOHOL WITHDRAWAL SYNDROME [None]
  - ANION GAP INCREASED [None]
  - BLOOD OSMOLARITY INCREASED [None]
  - BLOOD PH DECREASED [None]
  - DRUG TOXICITY [None]
  - HYPERTENSION [None]
  - PYREXIA [None]
  - TACHYCARDIA [None]
  - TREMOR [None]
